FAERS Safety Report 10014489 (Version 2)
Quarter: 2014Q2

REPORT INFORMATION
  Report Type: Spontaneous
  Country: TW (occurrence: TW)
  Receive Date: 20140317
  Receipt Date: 20140415
  Transmission Date: 20141212
  Serious: Yes (Hospitalization, Other)
  Sender: FDA-Public Use
  Company Number: TW-ROCHE-1359966

PATIENT
  Sex: Male

DRUGS (24)
  1. MIRCERA [Suspect]
     Indication: NEPHROGENIC ANAEMIA
     Route: 058
     Dates: start: 20130913, end: 20131011
  2. MIRCERA [Suspect]
     Route: 058
     Dates: start: 20131011, end: 20131115
  3. MIRCERA [Suspect]
     Route: 058
     Dates: start: 20131115, end: 20131213
  4. MIRCERA [Suspect]
     Route: 058
     Dates: start: 20131213, end: 20140103
  5. MIRCERA [Suspect]
     Route: 058
     Dates: start: 20140103, end: 20140103
  6. SODIUM BICARBONATE [Concomitant]
     Dosage: AFTER FOOD
     Route: 048
     Dates: end: 20131213
  7. TRENTAL [Concomitant]
     Route: 048
     Dates: end: 20131213
  8. BURINEX [Concomitant]
     Dosage: (EVERY OTHER DAY)
     Route: 048
     Dates: end: 20131213
  9. BURINEX [Concomitant]
     Dosage: AS REQUIRED
     Route: 048
     Dates: start: 20131213
  10. DICHLOTRIDE [Concomitant]
     Dosage: (EVERY OTHER DAY)
     Route: 048
     Dates: end: 20131213
  11. SLOW-K [Concomitant]
     Dosage: WITH FOOD
     Route: 048
     Dates: end: 20131213
  12. SENOKOT [Concomitant]
     Dosage: BEFORE SLEEP
     Route: 048
     Dates: end: 20131213
  13. CARVEDILOL [Concomitant]
     Dosage: WITH FOOD
     Route: 048
  14. MIZOLLEN [Concomitant]
     Route: 048
     Dates: end: 20131213
  15. FERROUS CITRATE [Concomitant]
     Dosage: AFTER FOOD
     Route: 048
     Dates: start: 20131011, end: 20131213
  16. FLURBIPROFEN [Concomitant]
     Route: 062
     Dates: start: 20131011, end: 20131115
  17. FLURBIPROFEN [Concomitant]
     Dosage: AT ONCE
     Route: 062
     Dates: start: 20131115
  18. STILNOX [Concomitant]
     Dosage: AT NIGHT
     Route: 048
     Dates: start: 20131115, end: 20140103
  19. STILNOX [Concomitant]
     Dosage: AT NIGHT
     Route: 048
     Dates: start: 20140103
  20. ALLERMIN [Concomitant]
     Dosage: AT ONCE
     Route: 042
     Dates: start: 20131213, end: 20131213
  21. DECADRON [Concomitant]
     Dosage: AT ONCE
     Route: 042
     Dates: start: 20131213, end: 20131213
  22. LASIX [Concomitant]
     Dosage: AT ONCE
     Route: 042
     Dates: start: 20131213, end: 20131213
  23. NORMAL SALINE [Concomitant]
     Dosage: AT ONCE
     Route: 041
     Dates: start: 20131213, end: 20131213
  24. CONIEL [Concomitant]
     Route: 048
     Dates: start: 20140130

REACTIONS (4)
  - Influenza [Not Recovered/Not Resolved]
  - Anaemia [Recovering/Resolving]
  - Haemorrhage [Recovered/Resolved]
  - Haemangioma [Unknown]
